FAERS Safety Report 7519755-2 (Version None)
Quarter: 2011Q2

REPORT INFORMATION
  Report Type: 
  Country: None (occurrence: None)
  Receive Date: 20110602
  Receipt Date: 20110526
  Transmission Date: 20111010
  Serious: Yes (Other)
  Sender: FDA-Public Use
  Company Number: JP-PFIZER INC-2011114456

PATIENT
  Age: 65 Year
  Sex: Female

DRUGS (3)
  1. ZOLPIDEM [Suspect]
     Route: 048
  2. ALPRAZOLAM [Suspect]
     Dosage: 0.4 MG/DAY
     Route: 048
  3. LYRICA [Suspect]
     Indication: NEURALGIA
     Dosage: 150 MG/DAY
     Route: 048
     Dates: start: 20110201

REACTIONS (4)
  - ROAD TRAFFIC ACCIDENT [None]
  - FACIAL BONES FRACTURE [None]
  - CONTUSION [None]
  - LOSS OF CONSCIOUSNESS [None]
